FAERS Safety Report 10147810 (Version 2)
Quarter: 2015Q4

REPORT INFORMATION
  Report Type: Spontaneous
  Country: US (occurrence: US)
  Receive Date: 20140501
  Receipt Date: 20151215
  Transmission Date: 20160304
  Serious: Yes (Other)
  Sender: FDA-Public Use
  Company Number: US-AMGEN-USASP2014025267

PATIENT
  Age: 68 Year
  Sex: Female

DRUGS (6)
  1. ENBREL [Suspect]
     Active Substance: ETANERCEPT
     Indication: PSORIASIS
  2. HUMIRA [Concomitant]
     Active Substance: ADALIMUMAB
  3. ENBREL [Suspect]
     Active Substance: ETANERCEPT
     Indication: PSORIATIC ARTHROPATHY
     Dosage: 50 MG, 2 TIMES/WK
     Route: 065
  4. XELJANZ [Suspect]
     Active Substance: TOFACITINIB CITRATE
     Indication: PRODUCT USED FOR UNKNOWN INDICATION
     Dosage: UNK
     Route: 065
  5. METHOTREXATE [Suspect]
     Active Substance: METHOTREXATE
     Indication: PRODUCT USED FOR UNKNOWN INDICATION
     Dosage: UNK
     Route: 065
  6. STELARA [Suspect]
     Active Substance: USTEKINUMAB
     Indication: PRODUCT USED FOR UNKNOWN INDICATION
     Dosage: UNK
     Route: 065

REACTIONS (12)
  - Hip arthroplasty [Unknown]
  - Back disorder [Not Recovered/Not Resolved]
  - Peripheral swelling [Unknown]
  - Arthropathy [Unknown]
  - Drug ineffective [Not Recovered/Not Resolved]
  - Dyspnoea [Not Recovered/Not Resolved]
  - Urticaria [Not Recovered/Not Resolved]
  - Hip surgery [Recovered/Resolved]
  - Arthralgia [Not Recovered/Not Resolved]
  - Back pain [Not Recovered/Not Resolved]
  - Pruritus [Not Recovered/Not Resolved]
  - Stress [Not Recovered/Not Resolved]

NARRATIVE: CASE EVENT DATE: 2012
